FAERS Safety Report 4604155-5 (Version None)
Quarter: 2005Q1

REPORT INFORMATION
  Report Type: 
  Country: None (occurrence: None)
  Receive Date: 20050308
  Receipt Date: 20050308
  Transmission Date: 20050727
  Serious: Yes (Hospitalization)
  Sender: FDA-Public Use
  Company Number: None

PATIENT
  Age: 77 Year
  Sex: Male
  Weight: 91.6 kg

DRUGS (4)
  1. DIGOXIN [Suspect]
     Indication: CARDIAC FAILURE CONGESTIVE
     Dosage: 0.125 MG PO QD
     Route: 048
  2. GABAPENTIN [Suspect]
     Indication: BACK PAIN
     Dosage: 600 MG PO BID  + 900 MG QHS
     Route: 048
  3. ISOSORBIDE DINITRATE [Suspect]
     Indication: MYOCARDIAL ISCHAEMIA
     Dosage: 10 MG PO TID  + 20 MG QHS
     Route: 048
  4. CARVEDILOL [Suspect]
     Indication: CARDIAC FAILURE CONGESTIVE
     Dosage: 6.25 MG PO BID
     Route: 048

REACTIONS (3)
  - FALL [None]
  - HALLUCINATION [None]
  - ORTHOSTATIC HYPOTENSION [None]
